FAERS Safety Report 25960653 (Version 1)
Quarter: 2025Q4

REPORT INFORMATION
  Report Type: Spontaneous
  Country: CA (occurrence: CA)
  Receive Date: 20251027
  Receipt Date: 20251027
  Transmission Date: 20260118
  Serious: Yes (Hospitalization, Other)
  Sender: AUROBINDO
  Company Number: CA-AUROBINDO-AUR-APL-2025-053932

PATIENT
  Sex: Female
  Weight: 5 kg

DRUGS (5)
  1. TADALAFIL [Suspect]
     Active Substance: TADALAFIL
     Indication: Pulmonary arterial hypertension
     Dosage: UNK
     Route: 065
  2. TADALAFIL [Suspect]
     Active Substance: TADALAFIL
     Indication: Heart disease congenital
  3. TRACLEER [Suspect]
     Active Substance: BOSENTAN
     Indication: Pulmonary arterial hypertension
     Dosage: UNK
     Route: 048
  4. TRACLEER [Suspect]
     Active Substance: BOSENTAN
     Indication: Heart disease congenital
  5. TRACLEER [Suspect]
     Active Substance: BOSENTAN
     Indication: Atrial septal defect

REACTIONS (1)
  - Drug ineffective [Unknown]
